FAERS Safety Report 17726533 (Version 4)
Quarter: 2020Q3

REPORT INFORMATION
  Report Type: Spontaneous
  Country: DE (occurrence: DE)
  Receive Date: 20200430
  Receipt Date: 20200910
  Transmission Date: 20201102
  Serious: Yes (Other)
  Sender: FDA-Public Use
  Company Number: DE-009507513-2004DEU007559

PATIENT
  Age: 48 Year
  Sex: Male
  Weight: 64.5 kg

DRUGS (3)
  1. MOCLOBEMIDE [Concomitant]
     Active Substance: MOCLOBEMIDE
     Indication: MAJOR DEPRESSION
     Dosage: 150 MILLIGRAM, BID (1 IN THE MORNING AND 1 IN THE EVENING)
     Dates: start: 20130125, end: 20130125
  2. PANTOPRAZOLE [Concomitant]
     Active Substance: PANTOPRAZOLE
     Dosage: UNK
  3. REMERGIL SOLTAB [Suspect]
     Active Substance: MIRTAZAPINE
     Indication: MAJOR DEPRESSION
     Dosage: 30 MILLIGRAM, ONCE DAILY IN THE EVENING
     Route: 048
     Dates: start: 20130104, end: 20130131

REACTIONS (1)
  - Drug-induced liver injury [Recovered/Resolved]

NARRATIVE: CASE EVENT DATE: 20130123
